FAERS Safety Report 23232140 (Version 2)
Quarter: 2023Q4

REPORT INFORMATION
  Report Type: Spontaneous
  Country: US (occurrence: US)
  Receive Date: 20231127
  Receipt Date: 20231205
  Transmission Date: 20240110
  Serious: Yes (Hospitalization, Other)
  Sender: FDA-Public Use
  Company Number: US-GILEAD-2023-0651871

PATIENT
  Age: 68 Year
  Sex: Male
  Weight: 216 kg

DRUGS (16)
  1. YESCARTA [Suspect]
     Active Substance: AXICABTAGENE CILOLEUCEL
     Indication: Marginal zone lymphoma
     Dosage: 68 ML, ONCE
     Route: 041
     Dates: start: 20230828, end: 20230828
  2. CYTOXAN [Concomitant]
     Active Substance: CYCLOPHOSPHAMIDE
     Indication: Lymphodepletion
     Dosage: UNK
     Dates: start: 20230823, end: 20230825
  3. FLUDARABINE [Concomitant]
     Active Substance: FLUDARABINE PHOSPHATE
     Indication: Lymphodepletion
     Dosage: UNK
     Dates: start: 20230823, end: 20230825
  4. VALACYCLOVIR [Concomitant]
     Active Substance: VALACYCLOVIR HYDROCHLORIDE
  5. VITAMIN D NOS [Concomitant]
     Active Substance: VITAMIN D NOS
  6. ALLOPURINOL [Concomitant]
     Active Substance: ALLOPURINOL
  7. BISACODYL [Concomitant]
     Active Substance: BISACODYL
  8. BUPROPION [Concomitant]
     Active Substance: BUPROPION
  9. FLUCONAZOLE [Concomitant]
     Active Substance: FLUCONAZOLE
  10. LATANOPROST [Concomitant]
     Active Substance: LATANOPROST
  11. LEVETIRACETAM [Concomitant]
     Active Substance: LEVETIRACETAM
  12. LEVOTHYROXINE [Concomitant]
     Active Substance: LEVOTHYROXINE
  13. OXYCODONE [Concomitant]
     Active Substance: OXYCODONE
  14. TAMSULOSIN [Concomitant]
     Active Substance: TAMSULOSIN
  15. TRAZODONE [Concomitant]
     Active Substance: TRAZODONE HYDROCHLORIDE
  16. ZOFRAN [Concomitant]
     Active Substance: ONDANSETRON HYDROCHLORIDE
     Indication: Nausea
     Dosage: UNK (SCHEDULED)
     Dates: start: 20230828

REACTIONS (3)
  - Ventricular tachycardia [Recovered/Resolved]
  - Encephalopathy [Unknown]
  - Cytokine release syndrome [Recovered/Resolved]

NARRATIVE: CASE EVENT DATE: 20230829
